FAERS Safety Report 9288291 (Version 1)
Quarter: 2013Q2

REPORT INFORMATION
  Report Type: Spontaneous
  Country: US (occurrence: None)
  Receive Date: 20130513
  Receipt Date: 20130513
  Transmission Date: 20140414
  Serious: No
  Sender: FDA-Public Use
  Company Number: None

PATIENT
  Age: 68 Year
  Sex: Female

DRUGS (1)
  1. GLEEVEC [Suspect]
     Indication: NEOPLASM MALIGNANT
     Dosage: 1 TABLET, QD, PO
     Route: 048
     Dates: start: 201109

REACTIONS (5)
  - Fatigue [None]
  - Lacrimation increased [None]
  - Constipation [None]
  - Eye swelling [None]
  - Decreased activity [None]
